FAERS Safety Report 17940441 (Version 8)
Quarter: 2021Q2

REPORT INFORMATION
  Report Type: Spontaneous
  Country: US (occurrence: US)
  Receive Date: 20200624
  Receipt Date: 20210630
  Transmission Date: 20210717
  Serious: Yes (Other)
  Sender: FDA-Public Use
  Company Number: US-PFIZER INC-2020241434

PATIENT
  Age: 53 Year
  Sex: Female
  Weight: 62 kg

DRUGS (27)
  1. IBRANCE [Suspect]
     Active Substance: PALBOCICLIB
     Dosage: 125 MG, CYCLIC (1 DAILY FOR 21 DAYS)
     Route: 048
     Dates: start: 20200605
  2. B?COMPLEX [VITAMIN B COMPLEX] [Concomitant]
     Dosage: 0.4 MG
  3. CYCLOBENZAPRINE HCL [Concomitant]
     Active Substance: CYCLOBENZAPRINE HYDROCHLORIDE
     Dosage: UNK
  4. IBRANCE [Suspect]
     Active Substance: PALBOCICLIB
     Indication: BREAST CANCER FEMALE
     Dosage: 125 MG, CYCLIC (1 TAB DAILY FOR 21 OUT OF 28 DAYS)
     Route: 048
     Dates: start: 20200605
  5. IBRANCE [Suspect]
     Active Substance: PALBOCICLIB
     Dosage: 125 MG, CYCLIC
     Route: 048
     Dates: start: 202010
  6. PROAIR HFA [Concomitant]
     Active Substance: ALBUTEROL SULFATE
     Dosage: UNK, [(HF90 MCG HFA AER AD)]
  7. FLONASE ALLERGY RELIEF [Concomitant]
     Active Substance: FLUTICASONE PROPIONATE
     Indication: HYPERSENSITIVITY
     Dosage: UNK
  8. PROCHLORPERAZINE MALEATE. [Concomitant]
     Active Substance: PROCHLORPERAZINE MALEATE
     Dosage: UNK
  9. PAXIL [Concomitant]
     Active Substance: PAROXETINE HYDROCHLORIDE
     Dosage: UNK
  10. PROCHLORPERAZINE MALEATE. [Concomitant]
     Active Substance: PROCHLORPERAZINE MALEATE
     Dosage: UNK
  11. BENADRYL [Concomitant]
     Active Substance: DIPHENHYDRAMINE HYDROCHLORIDE
     Indication: PRURITUS
     Dosage: UNK
  12. AZELASTINE HCL [Concomitant]
     Active Substance: AZELASTINE HYDROCHLORIDE
     Dosage: UNK (0.05 % DROPS)
  13. LETROZOLE. [Concomitant]
     Active Substance: LETROZOLE
     Dosage: 100 %
  14. DICYCLOMINE HCL [Concomitant]
     Active Substance: DICYCLOMINE HYDROCHLORIDE
     Dosage: UNK
  15. FLOVENT HFA [Concomitant]
     Active Substance: FLUTICASONE PROPIONATE
     Dosage: UNK (110 UG (AER W/ADAP)
  16. VITAMIN D3 [Concomitant]
     Active Substance: CHOLECALCIFEROL
     Dosage: UNK
  17. IBRANCE [Suspect]
     Active Substance: PALBOCICLIB
     Dosage: 125 MG, CYCLIC (TAKE 1 TABLET BY MOUTH ONCE DAILY ON DAYS 1?21 FOLLOWED BY 7 DAYS OFF TO COMPLETE A
  18. SERTRALINE HCL [Concomitant]
     Active Substance: SERTRALINE HYDROCHLORIDE
     Dosage: 100 MG, UNK
  19. VITAMIN B?1 [Concomitant]
     Active Substance: THIAMINE HYDROCHLORIDE
     Dosage: 100 MG
  20. L?ARGININE [ARGININE] [Concomitant]
     Active Substance: ARGININE
     Dosage: 1000 MG
  21. BENZONATATE. [Concomitant]
     Active Substance: BENZONATATE
     Dosage: UNK
  22. ZOMETA [Concomitant]
     Active Substance: ZOLEDRONIC ACID
     Dosage: UNK (4 MG/100ML PGGYBK BTL)
  23. PROGESTERONE. [Concomitant]
     Active Substance: PROGESTERONE
     Dosage: UNK
  24. VITAMIN C ACID [Concomitant]
     Active Substance: ASCORBIC ACID
     Dosage: 1000 MG,UNK
  25. VITAMIN B12 [Concomitant]
     Active Substance: CYANOCOBALAMIN
     Dosage: UNK
  26. SINGULAIR [Concomitant]
     Active Substance: MONTELUKAST SODIUM
     Dosage: 10 MG
  27. CALCIUM + D DUETTO [Concomitant]
     Active Substance: CALCIUM\CHOLECALCIFEROL
     Dosage: UNK

REACTIONS (29)
  - Back pain [Unknown]
  - Lymphadenopathy [Unknown]
  - Temporomandibular joint syndrome [Unknown]
  - Musculoskeletal stiffness [Recovering/Resolving]
  - Food allergy [Unknown]
  - Peripheral swelling [Unknown]
  - Headache [Unknown]
  - Rash [Unknown]
  - Tremor [Unknown]
  - Vein disorder [Unknown]
  - Arthralgia [Not Recovered/Not Resolved]
  - Diarrhoea [Unknown]
  - Neck pain [Unknown]
  - Pollakiuria [Unknown]
  - Frequent bowel movements [Unknown]
  - Sinus disorder [Unknown]
  - Joint stiffness [Not Recovered/Not Resolved]
  - Urine odour abnormal [Unknown]
  - Deafness [Unknown]
  - Therapeutic response unexpected [Unknown]
  - Lip disorder [Unknown]
  - Skin disorder [Unknown]
  - Condition aggravated [Not Recovered/Not Resolved]
  - Blood urine present [Unknown]
  - Joint swelling [Not Recovered/Not Resolved]
  - Bladder discomfort [Unknown]
  - Eye pruritus [Unknown]
  - Throat irritation [Unknown]
  - Abdominal pain upper [Unknown]

NARRATIVE: CASE EVENT DATE: 2020
